FAERS Safety Report 8308986-X (Version None)
Quarter: 2012Q1

REPORT INFORMATION
  Report Type: 
  Country: None (occurrence: None)
  Receive Date: 20120327
  Receipt Date: 20110121
  Transmission Date: 20120608
  Serious: Yes (Other)
  Sender: FDA-Public Use
  Company Number: PHHY2011US05483

PATIENT
  Age: 67 Year
  Sex: Female

DRUGS (2)
  1. CHEMOTHERAPEUTICS NOS (NO INGREDIENTS/SUBSTANCES) [Concomitant]
  2. GLEEVEC [Suspect]
     Indication: MALIGNANT SOFT TISSUE NEOPLASM
     Dosage: 400 MG, DAILY, ORAL
     Route: 048
     Dates: start: 20110105

REACTIONS (5)
  - DEPRESSION [None]
  - INFECTION [None]
  - VISION BLURRED [None]
  - NAUSEA [None]
  - PYREXIA [None]
